FAERS Safety Report 10711247 (Version 2)
Quarter: 2015Q1

REPORT INFORMATION
  Report Type: Report from Study
  Country: IT (occurrence: IT)
  Receive Date: 20150114
  Receipt Date: 20150128
  Transmission Date: 20150721
  Serious: Yes (Other)
  Sender: FDA-Public Use
  Company Number: IT-BAYER-2015-003437

PATIENT
  Age: 34 Year
  Weight: 85 kg

DRUGS (5)
  1. SORAFENIB (RAF KINASE INHIBITOR) [Suspect]
     Active Substance: SORAFENIB
     Indication: OSTEOSARCOMA RECURRENT
     Dosage: 800 MG, DAILY
     Route: 048
     Dates: start: 201203
  2. EVEROLIMUS [Suspect]
     Active Substance: EVEROLIMUS
     Indication: OSTEOSARCOMA RECURRENT
     Dosage: 5 MG, QD
     Dates: end: 20120301
  3. EVEROLIMUS [Suspect]
     Active Substance: EVEROLIMUS
     Indication: OSTEOSARCOMA RECURRENT
     Dosage: 5 MG, DAILY
     Dates: start: 201203
  4. SORAFENIB (RAF KINASE INHIBITOR) [Suspect]
     Active Substance: SORAFENIB
     Indication: OSTEOSARCOMA RECURRENT
     Dosage: 800 MG, DAILY
     Route: 048
     Dates: end: 20120301
  5. SORAFENIB (RAF KINASE INHIBITOR) [Suspect]
     Active Substance: SORAFENIB
     Indication: OSTEOSARCOMA RECURRENT
     Dosage: 400 MG, DAILY
     Route: 048

REACTIONS (4)
  - Osteosarcoma [None]
  - Pneumothorax [Recovered/Resolved]
  - Pneumothorax [None]
  - Skin toxicity [None]

NARRATIVE: CASE EVENT DATE: 2012
